FAERS Safety Report 10983408 (Version 1)
Quarter: 2015Q2

REPORT INFORMATION
  Report Type: Spontaneous
  Country: FR (occurrence: FR)
  Receive Date: 20150403
  Receipt Date: 20150403
  Transmission Date: 20150821
  Serious: Yes (Hospitalization)
  Sender: FDA-Public Use
  Company Number: FR-ROCHE-1559924

PATIENT
  Age: 64 Year
  Sex: Male

DRUGS (10)
  1. GAVISCON (ALGINIC ACID) [Concomitant]
  2. OMEPRAZOLE. [Concomitant]
     Active Substance: OMEPRAZOLE
  3. MABTHERA [Suspect]
     Active Substance: RITUXIMAB
     Dosage: THIRD COURSE
     Route: 065
     Dates: start: 20140829
  4. CYTARABINE. [Suspect]
     Active Substance: CYTARABINE
     Dosage: THIRD COURSE
     Route: 065
     Dates: start: 20140829
  5. MABTHERA [Suspect]
     Active Substance: RITUXIMAB
     Indication: MANTLE CELL LYMPHOMA
     Dosage: SECOND COURSE
     Route: 065
     Dates: start: 20140802
  6. METHOTREXATE [Suspect]
     Active Substance: METHOTREXATE
     Indication: MANTLE CELL LYMPHOMA
     Dosage: SECOND COURSE
     Route: 065
     Dates: start: 20140802
  7. METHOTREXATE [Suspect]
     Active Substance: METHOTREXATE
     Dosage: THIRD COURSE
     Route: 065
     Dates: start: 20140829
  8. CYTARABINE. [Suspect]
     Active Substance: CYTARABINE
     Indication: MANTLE CELL LYMPHOMA
     Dosage: SECOND COURSE
     Route: 065
     Dates: start: 20140802
  9. ZELITREX [Concomitant]
     Active Substance: VALACYCLOVIR HYDROCHLORIDE
     Route: 065
  10. TITANOREINE (FRANCE) [Concomitant]
     Route: 065

REACTIONS (1)
  - Acute kidney injury [Recovering/Resolving]

NARRATIVE: CASE EVENT DATE: 20140802
